FAERS Safety Report 14185351 (Version 1)
Quarter: 2017Q4

REPORT INFORMATION
  Report Type: Spontaneous
  Country: US (occurrence: US)
  Receive Date: 20171111
  Receipt Date: 20171111
  Transmission Date: 20180321
  Serious: Yes (Life-Threatening, Hospitalization, Disabling)
  Sender: FDA-Public Use
  Company Number: None

PATIENT
  Age: 58 Year
  Sex: Female
  Weight: 56.7 kg

DRUGS (1)
  1. SULFASALAZINE. [Suspect]
     Active Substance: SULFASALAZINE
     Indication: RHEUMATOID ARTHRITIS
     Route: 048
     Dates: start: 20170728, end: 20170818

REACTIONS (5)
  - Corneal epithelium defect [None]
  - Stevens-Johnson syndrome [None]
  - Eye disorder [None]
  - Dysphagia [None]
  - Toxic epidermal necrolysis [None]

NARRATIVE: CASE EVENT DATE: 20170819
